FAERS Safety Report 8604942-2 (Version None)
Quarter: 2012Q3

REPORT INFORMATION
  Report Type: 
  Country: None (occurrence: None)
  Receive Date: 20120820
  Receipt Date: 20120814
  Transmission Date: 20120928
  Serious: Yes (Hospitalization, Other)
  Sender: FDA-Public Use
  Company Number: FR-PFIZER INC-2012201038

PATIENT
  Age: 89 Year
  Sex: Female

DRUGS (7)
  1. COUMADIN [Concomitant]
     Dosage: UNK
     Dates: start: 20120501
  2. PANTOPRAZOLE [Concomitant]
     Indication: GASTROOESOPHAGEAL REFLUX DISEASE
     Dosage: UNK
     Dates: start: 20120607, end: 20120615
  3. PRAVASTATIN [Concomitant]
     Indication: HYPERTENSION
     Dosage: UNK
     Dates: start: 20120501
  4. CORDARONE [Suspect]
     Indication: MYOCARDIAL ISCHAEMIA
     Dosage: UNK
     Route: 065
  5. ASPIRIN [Concomitant]
     Indication: MYOCARDIAL ISCHAEMIA
     Dosage: UNK
     Dates: start: 20120501
  6. LASIX [Concomitant]
     Dosage: UNK
     Dates: start: 20120501
  7. PLAVIX [Concomitant]
     Dosage: UNK
     Dates: start: 20120501

REACTIONS (5)
  - THROMBOCYTOPENIA [None]
  - INTERNATIONAL NORMALISED RATIO INCREASED [None]
  - ANAEMIA [None]
  - HYPOTHYROIDISM [None]
  - LEUKOPENIA [None]
